FAERS Safety Report 23408545 (Version 1)
Quarter: 2024Q1

REPORT INFORMATION
  Report Type: Spontaneous
  Country: US (occurrence: US)
  Receive Date: 20240117
  Receipt Date: 20240117
  Transmission Date: 20240410
  Serious: Yes (Hospitalization, Other)
  Sender: FDA-Public Use
  Company Number: US-CIPLA LTD.-2024US00272

PATIENT

DRUGS (3)
  1. WARFARIN [Suspect]
     Active Substance: WARFARIN
     Indication: Vaginal haemorrhage
     Dosage: 2 MILLIGRAM, QD-NIGHTLY
     Route: 065
  2. WARFARIN [Suspect]
     Active Substance: WARFARIN
     Dosage: 4 MILLIGRAM, QD-NIGHTLY
     Route: 065
  3. HEPARIN [Suspect]
     Active Substance: HEPARIN SODIUM
     Indication: Product used for unknown indication
     Dosage: UNK
     Route: 042

REACTIONS (5)
  - Premature separation of placenta [Unknown]
  - Anticoagulation drug level above therapeutic [Unknown]
  - Subchorionic haematoma [Unknown]
  - Exposure during pregnancy [Unknown]
  - Premature delivery [Unknown]
